FAERS Safety Report 4368272-X (Version None)
Quarter: 2004Q2

REPORT INFORMATION
  Report Type: 
  Country: None (occurrence: None)
  Receive Date: 20040525
  Receipt Date: 20040512
  Transmission Date: 20050107
  Serious: Yes (Death)
  Sender: FDA-Public Use
  Company Number: KII-2002-0010294

PATIENT
  Age: 80 Year
  Sex: Male

DRUGS (8)
  1. OXYCONTIN [Suspect]
     Indication: PAIN
     Dosage: 10 MG, BID, ORAL
     Route: 048
     Dates: start: 20020212
  2. ALTACE [Suspect]
     Dosage: 5 MG, DAILY, ORAL
     Route: 048
  3. BUMEX [Suspect]
     Dosage: 1 MG, AM
     Dates: start: 20011019
  4. FLOMAX [Suspect]
     Dosage: 0.4 MG, DAILY
     Dates: start: 20011019
  5. COUMADIN [Suspect]
     Dosage: 5 MG , HS,  : 2.5
     Dates: start: 20011019
  6. TYLENOL W/ CODEINE NO. 3 [Suspect]
     Indication: PAIN
     Dosage: 2 TABLET, PRN, ORAL
     Route: 048
     Dates: start: 20011213
  7. CARDIZEM CD [Suspect]
     Dosage: 240 MG, AM, ORAL
     Route: 048
     Dates: start: 20020212
  8. VIOXX [Suspect]

REACTIONS (12)
  - BILE DUCT STONE [None]
  - BILIARY ABSCESS [None]
  - BLOOD CREATININE INCREASED [None]
  - BLOOD GLUCOSE INCREASED [None]
  - BLOOD POTASSIUM INCREASED [None]
  - BLOOD UREA INCREASED [None]
  - CHOLANGITIS ACUTE [None]
  - HAEMATOCRIT DECREASED [None]
  - HAEMOGLOBIN DECREASED [None]
  - INTRA-ABDOMINAL HAEMORRHAGE [None]
  - LIVER ABSCESS [None]
  - MEDICATION ERROR [None]
